FAERS Safety Report 12708874 (Version 1)
Quarter: 2016Q3

REPORT INFORMATION
  Report Type: Spontaneous
  Country: US (occurrence: US)
  Receive Date: 20160901
  Receipt Date: 20160901
  Transmission Date: 20161109
  Serious: No
  Sender: FDA-Public Use
  Company Number: US-JAZZ-2016-US-008281

PATIENT
  Sex: Male

DRUGS (16)
  1. XYREM [Suspect]
     Active Substance: SODIUM OXYBATE
     Indication: NARCOLEPSY
     Dosage: 3 G, BID
     Route: 048
     Dates: start: 200808, end: 200811
  2. CLARINEX [Concomitant]
     Active Substance: DESLORATADINE
  3. XYREM [Suspect]
     Active Substance: SODIUM OXYBATE
     Dosage: 4.5 G, BID
     Route: 048
     Dates: start: 200811, end: 201011
  4. NORCO [Concomitant]
     Active Substance: ACETAMINOPHEN\HYDROCODONE BITARTRATE
  5. NUVIGIL [Concomitant]
     Active Substance: ARMODAFINIL
  6. ZYRTEC [Concomitant]
     Active Substance: CETIRIZINE HYDROCHLORIDE
  7. XYREM [Suspect]
     Active Substance: SODIUM OXYBATE
     Dosage: 5 G, BID
     Route: 048
     Dates: start: 201011, end: 2011
  8. ADVIL [Concomitant]
     Active Substance: IBUPROFEN
  9. PROVIGIL [Concomitant]
     Active Substance: MODAFINIL
  10. TIZANIDINE HCL [Concomitant]
     Active Substance: TIZANIDINE HYDROCHLORIDE
  11. XYREM [Suspect]
     Active Substance: SODIUM OXYBATE
     Dosage: 4.5 G, BID
     Route: 048
     Dates: start: 201410
  12. ZOHYDRO [Concomitant]
     Active Substance: HYDROCODONE BITARTRATE
  13. HORIZANT [Concomitant]
     Active Substance: GABAPENTIN ENACARBIL
  14. DIAZEPAM. [Concomitant]
     Active Substance: DIAZEPAM
  15. HYOMAX [Concomitant]
     Active Substance: HYOSCYAMINE SULFATE
  16. METANX [Concomitant]
     Active Substance: LEVOMEFOLATE CALCIUM\METHYLCOBALAMIN\PYRIDOXAL PHOSPHATE ANHYDROUS

REACTIONS (4)
  - Drug ineffective [Unknown]
  - Poor quality sleep [Not Recovered/Not Resolved]
  - Restless legs syndrome [Unknown]
  - Myalgia [Unknown]
